FAERS Safety Report 4356987-9 (Version None)
Quarter: 2004Q2

REPORT INFORMATION
  Report Type: 
  Country: None (occurrence: None)
  Receive Date: 20040507
  Receipt Date: 20040422
  Transmission Date: 20050107
  Serious: Yes (Hospitalization, Other)
  Sender: FDA-Public Use
  Company Number: S04-USA-02062-01

PATIENT
  Age: 71 Year
  Sex: Female
  Weight: 60.3284 kg

DRUGS (9)
  1. NAMENDA [Suspect]
     Indication: DEMENTIA ALZHEIMER'S TYPE
     Dosage: 5 MG QD PO
     Route: 048
     Dates: start: 20040329, end: 20040403
  2. NAMENDA [Suspect]
     Indication: MEMORY IMPAIRMENT
     Dosage: 5 MG QD PO
     Route: 048
     Dates: start: 20040329, end: 20040403
  3. ACTONEL [Concomitant]
  4. EFFEXOR XR [Concomitant]
  5. EXELON [Concomitant]
  6. SYNTHROID [Concomitant]
  7. TOPROL-XL [Concomitant]
  8. CITRACAL (CALCIUM CITRATE) [Concomitant]
  9. MULTI-VITAMIN [Concomitant]

REACTIONS (3)
  - COMPUTERISED TOMOGRAM ABNORMAL [None]
  - DIARRHOEA [None]
  - PANCREATITIS [None]
